FAERS Safety Report 5645071-X (Version None)
Quarter: 2008Q1

REPORT INFORMATION
  Report Type: 
  Country: None (occurrence: None)
  Receive Date: 20080229
  Receipt Date: 20080229
  Transmission Date: 20080703
  Serious: Yes (Death, Life-Threatening, Hospitalization)
  Sender: FDA-Public Use
  Company Number: None

PATIENT
  Age: 73 Year
  Sex: Female

DRUGS (1)
  1. HEPARIN [Suspect]
     Indication: CARDIAC OPERATION
     Dates: start: 20071013, end: 20071014

REACTIONS (4)
  - ADVERSE DRUG REACTION [None]
  - SKIN NECROSIS [None]
  - SURGICAL PROCEDURE REPEATED [None]
  - THROMBOSIS IN DEVICE [None]
